FAERS Safety Report 8330645-8 (Version None)
Quarter: 2012Q2

REPORT INFORMATION
  Report Type: 
  Country: None (occurrence: None)
  Receive Date: 20120502
  Receipt Date: 20120406
  Transmission Date: 20120825
  Serious: No
  Sender: FDA-Public Use
  Company Number: US-AMGEN-USASP2012022046

PATIENT
  Age: 58 Year
  Sex: Female

DRUGS (3)
  1. ENBREL [Suspect]
     Indication: PSORIATIC ARTHROPATHY
     Dosage: 50 MG, QWK
     Dates: start: 20120101
  2. SINGULAIR [Concomitant]
     Dosage: UNK
  3. CLARITIN                           /00413701/ [Concomitant]
     Dosage: UNK

REACTIONS (1)
  - ARTHROPOD BITE [None]
